FAERS Safety Report 7575508-0 (Version None)
Quarter: 2011Q2

REPORT INFORMATION
  Report Type: 
  Country: None (occurrence: None)
  Receive Date: 20110627
  Receipt Date: 20110615
  Transmission Date: 20111010
  Serious: Yes (Other)
  Sender: FDA-Public Use
  Company Number: US-ELI_LILLY_AND_COMPANY-US201106005075

PATIENT
  Sex: Female

DRUGS (3)
  1. HUMALOG [Suspect]
     Indication: DIABETES MELLITUS
     Dosage: 17 U, UNKNOWN
     Dates: start: 19910101
  2. HUMALOG [Suspect]
     Dosage: 10 U, OTHER
     Dates: start: 19910101
  3. HUMALOG [Suspect]
     Dosage: UNK, PRN
     Dates: start: 19910101

REACTIONS (3)
  - HYPERTENSION [None]
  - EYE DISORDER [None]
  - RENAL TRANSPLANT [None]
